FAERS Safety Report 10449057 (Version 1)
Quarter: 2014Q3

REPORT INFORMATION
  Report Type: Spontaneous
  Country: US (occurrence: None)
  Receive Date: 20140911
  Receipt Date: 20140911
  Transmission Date: 20150326
  Serious: Yes (Death)
  Sender: FDA-Public Use
  Company Number: None

PATIENT
  Age: 19 Year
  Sex: Male

DRUGS (1)
  1. ZOLINZA [Suspect]
     Active Substance: VORINOSTAT
     Indication: SALIVARY GLAND CANCER
     Dosage: 400MG, 2D, PO
     Route: 048
     Dates: start: 20140730, end: 20140824

REACTIONS (1)
  - Death [None]

NARRATIVE: CASE EVENT DATE: 20140824
